FAERS Safety Report 8242587-7 (Version None)
Quarter: 2012Q1

REPORT INFORMATION
  Report Type: 
  Country: None (occurrence: None)
  Receive Date: 20120329
  Receipt Date: 20120322
  Transmission Date: 20120608
  Serious: Yes (Other)
  Sender: FDA-Public Use
  Company Number: PHEH2011US06861

PATIENT
  Sex: Female

DRUGS (2)
  1. RECLAST [Suspect]
     Indication: OSTEOPENIA
     Dosage: 5 MG, YEARLY
     Route: 042
     Dates: start: 20111005
  2. IBUPROFEN [Suspect]
     Dosage: 1 DF(400-600 MG), TID

REACTIONS (18)
  - NEPHROPATHY TOXIC [None]
  - FEELING ABNORMAL [None]
  - FOOT FRACTURE [None]
  - HYPOKINESIA [None]
  - COLD SWEAT [None]
  - HEADACHE [None]
  - LOCALISED INFECTION [None]
  - CHILLS [None]
  - ASTHENIA [None]
  - ARTHRALGIA [None]
  - JOINT SWELLING [None]
  - CHEST PAIN [None]
  - GAIT DISTURBANCE [None]
  - NAUSEA [None]
  - JOINT STIFFNESS [None]
  - HYPERSOMNIA [None]
  - PAIN [None]
  - DYSPNOEA [None]
